FAERS Safety Report 4662592-7 (Version None)
Quarter: 2005Q2

REPORT INFORMATION
  Report Type: 
  Country: None (occurrence: None)
  Receive Date: 20050516
  Receipt Date: 20050505
  Transmission Date: 20051028
  Serious: Yes (Other)
  Sender: FDA-Public Use
  Company Number: 2005AP02621

PATIENT
  Age: 64 Year
  Sex: Male
  Weight: 52.8 kg

DRUGS (6)
  1. IRESSA [Suspect]
     Indication: NASOPHARYNGEAL CANCER
     Route: 048
     Dates: start: 20050127
  2. IRESSA [Suspect]
     Route: 048
     Dates: start: 20050421
  3. LOMOTIL [Concomitant]
     Indication: DIARRHOEA
     Route: 048
     Dates: start: 20050421
  4. CALAMINE [Concomitant]
     Indication: RASH
     Route: 061
     Dates: start: 20050421
  5. EMULSIFYING OINTMENT [Concomitant]
     Indication: DRY SKIN
     Route: 061
     Dates: start: 20050421
  6. DOLGESIC [Concomitant]
     Indication: PAIN
     Route: 048
     Dates: start: 20050421

REACTIONS (2)
  - DIARRHOEA [None]
  - SYNCOPE [None]
